FAERS Safety Report 9630560 (Version 8)
Quarter: 2014Q2

REPORT INFORMATION
  Report Type: Report from Study
  Country: CA (occurrence: CA)
  Receive Date: 20131018
  Receipt Date: 20140519
  Transmission Date: 20141212
  Serious: Yes (Hospitalization, Other)
  Sender: FDA-Public Use
  Company Number: PHHY2013CA078429

PATIENT
  Age: 79 Year
  Sex: Female

DRUGS (3)
  1. SANDOSTATIN LAR [Suspect]
     Indication: NEUROENDOCRINE CARCINOMA
     Dosage: 30 MG, EVERY 4 WEEKS
     Route: 030
     Dates: start: 20130719, end: 20131111
  2. SANDOSTATIN (OCTREOTIDE ACETATE) [Suspect]
     Indication: NEUROENDOCRINE CARCINOMA
     Dosage: 50 UG, UKN
     Route: 058
     Dates: start: 20130711
  3. SANDOSTATIN (OCTREOTIDE ACETATE) [Suspect]
     Dosage: UNK UKN, UNK

REACTIONS (8)
  - Cerebrovascular accident [Unknown]
  - Hemiplegia [Unknown]
  - Dysphagia [Unknown]
  - Communication disorder [Unknown]
  - Malaise [Unknown]
  - Heart rate increased [Unknown]
  - Blood pressure increased [Unknown]
  - Performance status decreased [Unknown]
